FAERS Safety Report 10259903 (Version 2)
Quarter: 2014Q3

REPORT INFORMATION
  Report Type: Spontaneous
  Country: JP (occurrence: JP)
  Receive Date: 20140625
  Receipt Date: 20140703
  Transmission Date: 20150326
  Serious: Yes (Other)
  Sender: FDA-Public Use
  Company Number: JP-GLAXOSMITHKLINE-B1006508A

PATIENT
  Age: 6 Decade
  Sex: Male

DRUGS (6)
  1. LAMICTAL [Suspect]
     Active Substance: LAMOTRIGINE
     Indication: BIPOLAR DISORDER
     Dosage: 50MG PER DAY
     Route: 048
     Dates: start: 2014
  2. LAMICTAL [Suspect]
     Active Substance: LAMOTRIGINE
     Indication: BIPOLAR DISORDER
     Dosage: 50MG PER DAY
     Route: 048
     Dates: start: 201406
  3. ABILIFY [Concomitant]
     Active Substance: ARIPIPRAZOLE
     Dosage: 3MG PER DAY
     Route: 048
  4. LAMICTAL [Suspect]
     Active Substance: LAMOTRIGINE
     Indication: BIPOLAR DISORDER
     Dosage: 50MG TWICE PER DAY
     Route: 048
     Dates: end: 201406
  5. PAXIL [Suspect]
     Active Substance: PAROXETINE HYDROCHLORIDE
     Indication: OBSESSIVE-COMPULSIVE DISORDER
     Dosage: 40MG PER DAY
     Route: 048
  6. ZYPREXA [Concomitant]
     Active Substance: OLANZAPINE
     Dosage: 5MG PER DAY
     Route: 048

REACTIONS (1)
  - Epilepsy [Recovered/Resolved]

NARRATIVE: CASE EVENT DATE: 20140618
